FAERS Safety Report 19361563 (Version 3)
Quarter: 2025Q3

REPORT INFORMATION
  Report Type: Spontaneous
  Country: EU (occurrence: EU)
  Receive Date: 20210601
  Receipt Date: 20250917
  Transmission Date: 20251021
  Serious: Yes (Life-Threatening, Hospitalization, Other)
  Sender: ROCHE
  Company Number: EU-ROCHE-2839693

PATIENT
  Age: 85 Year
  Sex: Female
  Weight: 72.8 kg

DRUGS (7)
  1. TOCILIZUMAB [Suspect]
     Active Substance: TOCILIZUMAB
     Indication: Giant cell arteritis
     Dosage: 600 TOTAL MONTHLY DOSE
     Route: 042
     Dates: start: 20201216
  2. TOCILIZUMAB [Suspect]
     Active Substance: TOCILIZUMAB
     Route: 042
     Dates: start: 20210118
  3. TOCILIZUMAB [Suspect]
     Active Substance: TOCILIZUMAB
     Route: 042
     Dates: start: 20210215
  4. TOCILIZUMAB [Suspect]
     Active Substance: TOCILIZUMAB
     Route: 042
     Dates: start: 20210316
  5. TOCILIZUMAB [Suspect]
     Active Substance: TOCILIZUMAB
     Dosage: 600 TOTAL MONTHLY DOSE
     Route: 042
     Dates: start: 20201216
  6. CORTISONE [Suspect]
     Active Substance: CORTISONE
     Indication: Product used for unknown indication
     Route: 050
  7. PREDNISOLONE [Concomitant]
     Active Substance: PREDNISOLONE
     Route: 048
     Dates: start: 20200920

REACTIONS (6)
  - Meningitis listeria [Unknown]
  - Brain abscess [Recovered/Resolved with Sequelae]
  - Limb discomfort [Unknown]
  - Hypokinesia [Unknown]
  - Listeriosis [Unknown]
  - Bacterial abscess central nervous system [Recovered/Resolved with Sequelae]

NARRATIVE: CASE EVENT DATE: 20210404
